FAERS Safety Report 9402284 (Version 1)
Quarter: 2013Q3

REPORT INFORMATION
  Report Type: Spontaneous
  Country: US (occurrence: US)
  Receive Date: 20130716
  Receipt Date: 20130716
  Transmission Date: 20140515
  Serious: No
  Sender: FDA-Public Use
  Company Number: US-GLAXOSMITHKLINE-A1023668A

PATIENT
  Sex: 0

DRUGS (1)
  1. NICORETTE MINIS MINT [Suspect]
     Indication: SMOKING CESSATION THERAPY

REACTIONS (2)
  - Intentional drug misuse [Unknown]
  - Drug administration error [Unknown]
